FAERS Safety Report 16039759 (Version 1)
Quarter: 2019Q1

REPORT INFORMATION
  Report Type: Spontaneous
  Country: AU (occurrence: AU)
  Receive Date: 20190306
  Receipt Date: 20190306
  Transmission Date: 20190418
  Serious: Yes (Other)
  Sender: FDA-Public Use
  Company Number: AU-TEVA-2019-AU-1018969

PATIENT
  Age: 41 Year
  Sex: Male

DRUGS (8)
  1. CLOPINE [Suspect]
     Active Substance: CLOZAPINE
     Route: 065
  2. CLOZAPINE. [Suspect]
     Active Substance: CLOZAPINE
     Route: 065
  3. AMPHETAMINE [Concomitant]
     Active Substance: AMPHETAMINE
  4. SALBUTAMOL [Suspect]
     Active Substance: ALBUTEROL
     Route: 065
  5. QUETIAPINE. [Suspect]
     Active Substance: QUETIAPINE
     Dosage: DOSAGE UNKNOWN
     Route: 065
  6. OLANZAPINE. [Concomitant]
     Active Substance: OLANZAPINE
  7. SERETIDE [Concomitant]
     Active Substance: FLUTICASONE PROPIONATE\SALMETEROL XINAFOATE
  8. DIAZEPAM. [Concomitant]
     Active Substance: DIAZEPAM

REACTIONS (12)
  - Dyspnoea [Unknown]
  - White blood cell count decreased [Unknown]
  - Electrocardiogram QT prolonged [Unknown]
  - C-reactive protein increased [Unknown]
  - Electrocardiogram abnormal [Unknown]
  - Troponin increased [Unknown]
  - Neutrophil count decreased [Unknown]
  - Hypersensitivity myocarditis [Unknown]
  - Myocarditis [Unknown]
  - Tachycardia induced cardiomyopathy [Unknown]
  - Blood creatine phosphokinase increased [Unknown]
  - Myocardial infarction [Unknown]
